FAERS Safety Report 8581250-X (Version None)
Quarter: 2012Q3

REPORT INFORMATION
  Report Type: 
  Country: None (occurrence: None)
  Receive Date: 20120809
  Receipt Date: 20120803
  Transmission Date: 20120928
  Serious: Yes (Other)
  Sender: FDA-Public Use
  Company Number: PHHY2012BR067973

PATIENT
  Sex: Female

DRUGS (1)
  1. AMLODOPINE BESYLATE AND VALSARTAN [Suspect]
     Indication: HYPERTENSION
     Dosage: (160/? MG), TWICE A DAY

REACTIONS (3)
  - BLOOD PRESSURE SYSTOLIC INCREASED [None]
  - NEOPLASM MALIGNANT [None]
  - DRUG INEFFECTIVE [None]
